FAERS Safety Report 10266023 (Version 1)
Quarter: 2014Q2

REPORT INFORMATION
  Report Type: Spontaneous
  Country: CN (occurrence: CN)
  Receive Date: 20140627
  Receipt Date: 20140627
  Transmission Date: 20141212
  Serious: Yes (Hospitalization, Disabling)
  Sender: FDA-Public Use
  Company Number: CN-BRISTOL-MYERS SQUIBB COMPANY-21074265

PATIENT
  Age: 42 Year
  Sex: Male
  Weight: 73 kg

DRUGS (1)
  1. BARACLUDE TABS [Suspect]
     Indication: CHRONIC HEPATITIS B
     Route: 048
     Dates: start: 20131020, end: 20131024

REACTIONS (4)
  - Cardiac function test abnormal [Unknown]
  - Electrocardiogram abnormal [Unknown]
  - Liver function test abnormal [Unknown]
  - Asthenia [Unknown]
